FAERS Safety Report 23177560 (Version 1)
Quarter: 2023Q4

REPORT INFORMATION
  Report Type: Spontaneous
  Country: CA (occurrence: CA)
  Receive Date: 20231113
  Receipt Date: 20231113
  Transmission Date: 20240109
  Serious: Yes (Congenital Anomaly)
  Sender: FDA-Public Use
  Company Number: CA-SANDOZ-SDZ2023CA053150

PATIENT
  Age: 28 Month
  Sex: Female
  Weight: 3 kg

DRUGS (1)
  1. LEVETIRACETAM [Suspect]
     Active Substance: LEVETIRACETAM
     Indication: Epilepsy
     Dosage: UNK
     Route: 064

REACTIONS (2)
  - Cranial nerve disorder [Unknown]
  - Foetal exposure during pregnancy [Unknown]
